FAERS Safety Report 8776196 (Version 1)
Quarter: 2012Q4

REPORT INFORMATION
  Report Type: 
  Country: JP (occurrence: JP)
  Receive Date: 20120910
  Receipt Date: 20120910
  Transmission Date: 20130627
  Serious: Yes (Disabling)
  Sender: FDA-Public Use
  Company Number: JP-PFIZER INC-2012221370

PATIENT
  Age: 84 Year
  Sex: Female

DRUGS (2)
  1. CELECOX [Suspect]
     Dosage: 200 mg, daily
     Route: 048
     Dates: start: 201108, end: 201206
  2. OMEPRAL [Concomitant]
     Dosage: UNK

REACTIONS (1)
  - Renal disorder [Not Recovered/Not Resolved]
